FAERS Safety Report 25181012 (Version 1)
Quarter: 2025Q2

REPORT INFORMATION
  Report Type: Spontaneous
  Country: US (occurrence: US)
  Receive Date: 20250409
  Receipt Date: 20250409
  Transmission Date: 20250716
  Serious: Yes (Death, Other)
  Sender: MALLINCKRODT
  Company Number: US-MALLINCKRODT-MNK202502064

PATIENT
  Age: 37 Year
  Sex: Male

DRUGS (1)
  1. NITRIC OXIDE [Suspect]
     Active Substance: NITRIC OXIDE
     Indication: Respiratory failure
     Route: 055

REACTIONS (8)
  - Cardiac death [Fatal]
  - Septic shock [Unknown]
  - Condition aggravated [Unknown]
  - Bronchopleural fistula [Unknown]
  - Haemothorax [Unknown]
  - Herpes simplex test positive [Unknown]
  - Drug ineffective for unapproved indication [Unknown]
  - Product use issue [Unknown]
